FAERS Safety Report 9296747 (Version 1)
Quarter: 2013Q2

REPORT INFORMATION
  Report Type: Spontaneous
  Country: US (occurrence: US)
  Receive Date: 20130517
  Receipt Date: 20130517
  Transmission Date: 20140414
  Serious: No
  Sender: FDA-Public Use
  Company Number: US-ASTRAZENECA-2013SE32173

PATIENT
  Age: 17 Year
  Sex: Male
  Weight: 79.4 kg

DRUGS (5)
  1. SEROQUEL [Suspect]
     Indication: BIPOLAR DISORDER
     Route: 048
  2. SEROQUEL [Suspect]
     Indication: BIPOLAR DISORDER
     Route: 048
     Dates: start: 2003
  3. SINGULAIR [Concomitant]
     Indication: ASTHMA
  4. STRATTERA [Concomitant]
     Indication: ATTENTION DEFICIT/HYPERACTIVITY DISORDER
  5. SYNTHROID [Concomitant]
     Indication: THYROID DISORDER

REACTIONS (4)
  - Insomnia [Unknown]
  - Somnolence [Unknown]
  - Intentional drug misuse [Unknown]
  - Drug ineffective [Unknown]
